FAERS Safety Report 9890410 (Version 1)
Quarter: 2014Q1

REPORT INFORMATION
  Report Type: Spontaneous
  Country: US (occurrence: None)
  Receive Date: 20140211
  Receipt Date: 20140211
  Transmission Date: 20141002
  Serious: Yes (Death)
  Sender: FDA-Public Use
  Company Number: None

PATIENT
  Sex: Male

DRUGS (1)
  1. ZYTIGA 250 MG JANSSEN BIOTECH [Suspect]
     Indication: PROSTATE CANCER
     Dosage: 4 TABLETS?DAILY?PO
     Route: 048
     Dates: start: 20120130, end: 20140210

REACTIONS (2)
  - Disease progression [None]
  - Unevaluable event [None]
